FAERS Safety Report 16462536 (Version 1)
Quarter: 2019Q2

REPORT INFORMATION
  Report Type: Other
  Country: TW (occurrence: TW)
  Receive Date: 20190621
  Receipt Date: 20190621
  Transmission Date: 20190711
  Serious: Yes (Death, Life-Threatening)
  Sender: FDA-Public Use
  Company Number: TW-APPCO PHARMA LLC-2069447

PATIENT
  Age: 75 Year
  Sex: Male

DRUGS (1)
  1. RANITIDINE HYDROCHLORIDE. [Suspect]
     Active Substance: RANITIDINE HYDROCHLORIDE
     Indication: PEPTIC ULCER
     Route: 042

REACTIONS (3)
  - Injection site pain [Unknown]
  - Anaphylactic reaction [Fatal]
  - Pneumothorax [Unknown]
